FAERS Safety Report 10581730 (Version 2)
Quarter: 2014Q4

REPORT INFORMATION
  Report Type: Spontaneous
  Country: RS (occurrence: RS)
  Receive Date: 20141113
  Receipt Date: 20141121
  Transmission Date: 20150529
  Serious: Yes (Other)
  Sender: FDA-Public Use
  Company Number: PHHY2014RS146086

PATIENT
  Age: 2 Year
  Sex: Male

DRUGS (1)
  1. METHOTREXATE [Suspect]
     Active Substance: METHOTREXATE
     Indication: ACUTE LYMPHOCYTIC LEUKAEMIA
     Route: 065

REACTIONS (7)
  - Ataxia [Unknown]
  - Arachnoiditis [Unknown]
  - Cerebral calcification [Unknown]
  - Hemiparesis [Unknown]
  - Toxicity to various agents [Unknown]
  - Encephalopathy [Unknown]
  - Brain oedema [Unknown]
